FAERS Safety Report 20150675 (Version 2)
Quarter: 2021Q4

REPORT INFORMATION
  Report Type: Report from Study
  Country: US (occurrence: US)
  Receive Date: 20211206
  Receipt Date: 20211214
  Transmission Date: 20220303
  Serious: Yes (Death)
  Sender: FDA-Public Use
  Company Number: US-Taiho Oncology Inc-EU-2021-03820

PATIENT
  Age: 51 Year
  Sex: Female

DRUGS (9)
  1. LONSURF [Suspect]
     Active Substance: TIPIRACIL HYDROCHLORIDE\TRIFLURIDINE
     Indication: Rectal cancer
     Dosage: CURRENT CYCLE UNKNOWN.
     Route: 048
     Dates: start: 20211014
  2. GABAPENTIN [Concomitant]
     Active Substance: GABAPENTIN
  3. MORPHINE [Concomitant]
     Active Substance: MORPHINE
  4. OXYCODONE [Concomitant]
     Active Substance: OXYCODONE
  5. METFORMIN [Concomitant]
     Active Substance: METFORMIN HYDROCHLORIDE
  6. TRESIBA [Concomitant]
     Active Substance: INSULIN DEGLUDEC
  7. FIASP [Concomitant]
     Active Substance: INSULIN ASPART
  8. LIRAGLUTIDE [Concomitant]
     Active Substance: LIRAGLUTIDE
  9. POTASSIUM [Concomitant]
     Active Substance: POTASSIUM

REACTIONS (1)
  - Disease progression [Fatal]

NARRATIVE: CASE EVENT DATE: 20211122
